FAERS Safety Report 11525723 (Version 3)
Quarter: 2015Q4

REPORT INFORMATION
  Report Type: Report from Study
  Country: AR (occurrence: AR)
  Receive Date: 20150918
  Receipt Date: 20151116
  Transmission Date: 20160304
  Serious: Yes (Hospitalization, Other)
  Sender: FDA-Public Use
  Company Number: PHHY2013AR040514

PATIENT
  Sex: Male

DRUGS (1)
  1. GLIVEC [Suspect]
     Active Substance: IMATINIB MESYLATE
     Indication: GASTROINTESTINAL STROMAL TUMOUR
     Dosage: 400 MG, DAILY
     Route: 048
     Dates: start: 20031005

REACTIONS (6)
  - Back pain [Unknown]
  - Subacute endocarditis [Recovered/Resolved]
  - Transient ischaemic attack [Recovered/Resolved]
  - Anaemia [Unknown]
  - Pyrexia [Unknown]
  - Weight decreased [Unknown]
